FAERS Safety Report 10241840 (Version 1)
Quarter: 2014Q2

REPORT INFORMATION
  Report Type: Spontaneous
  Country: US (occurrence: US)
  Receive Date: 20140617
  Receipt Date: 20140617
  Transmission Date: 20141212
  Serious: Yes (Hospitalization)
  Sender: FDA-Public Use
  Company Number: US-GLAXOSMITHKLINE-A1076434A

PATIENT
  Sex: Female

DRUGS (18)
  1. ADVAIR HFA [Suspect]
     Indication: ASTHMA
     Dosage: 1PUFF PER DAY
     Route: 055
  2. VENTOLIN [Suspect]
     Indication: ASTHMA
     Route: 055
  3. SPIRIVA [Concomitant]
  4. LOVASTATIN [Concomitant]
  5. PAROXETINE HCL [Concomitant]
  6. CITALOPRAM [Concomitant]
  7. AMLODIPINE [Concomitant]
  8. MONTELUKAST [Concomitant]
  9. OMEPRAZOLE [Concomitant]
  10. HYDROCODONE + ACETAMINOPHEN [Concomitant]
  11. PRAVASTATIN [Concomitant]
  12. LISINOPRIL [Concomitant]
  13. METOPROLOL TARTRATE [Concomitant]
  14. FUROSEMIDE [Concomitant]
  15. IPRATROPIUM [Concomitant]
  16. ALBUTEROL NEBULIZER [Concomitant]
  17. HUMALOG INSULIN [Concomitant]
  18. LANTUS [Concomitant]

REACTIONS (2)
  - Chronic obstructive pulmonary disease [Unknown]
  - Asthma [Unknown]
